FAERS Safety Report 10012328 (Version 1)
Quarter: 2014Q1

REPORT INFORMATION
  Report Type: Spontaneous
  Country: FR (occurrence: FR)
  Receive Date: 20140314
  Receipt Date: 20140314
  Transmission Date: 20141002
  Serious: Yes (Hospitalization)
  Sender: FDA-Public Use
  Company Number: FR-B.I. PHARMACEUTICALS,INC./RIDGEFIELD-2014-BI-10326FF

PATIENT
  Age: 90 Year
  Sex: Female

DRUGS (6)
  1. MICARDIS [Suspect]
     Indication: HYPERTENSION
     Dosage: 20 MG
     Route: 048
  2. HEMIGOXINE NATIVELLE 0.125 MG [Concomitant]
     Dosage: STRENGTH: 0.125
     Route: 065
  3. PREVISCAN 20 MG [Concomitant]
     Dosage: STRENGTH: 20 MG
     Route: 065
  4. INIPOMP 20 MG [Concomitant]
     Dosage: STRENGTH: 20 MG
     Route: 065
  5. CRESTOR 5 MG [Concomitant]
     Dosage: STRENGTH: 5 MG
     Route: 048
  6. XYZALL 5 MG [Concomitant]
     Dosage: STRENGTH: 5 MG
     Route: 065

REACTIONS (4)
  - Fall [Recovered/Resolved with Sequelae]
  - Foot fracture [Recovered/Resolved with Sequelae]
  - Clavicle fracture [Recovered/Resolved with Sequelae]
  - Orthostatic hypotension [Recovered/Resolved with Sequelae]
